FAERS Safety Report 11018881 (Version 6)
Quarter: 2016Q3

REPORT INFORMATION
  Report Type: Spontaneous
  Country: US (occurrence: US)
  Receive Date: 20150412
  Receipt Date: 20160905
  Transmission Date: 20161109
  Serious: No
  Sender: FDA-Public Use
  Company Number: US-JNJFOC-20140823265

PATIENT
  Age: 51 Year
  Sex: Female

DRUGS (2)
  1. LEVAQUIN [Suspect]
     Active Substance: LEVOFLOXACIN
     Indication: URINARY TRACT INFECTION
     Route: 048
     Dates: start: 20100801
  2. LEVAQUIN [Suspect]
     Active Substance: LEVOFLOXACIN
     Indication: BRONCHITIS
     Route: 048
     Dates: start: 20100801

REACTIONS (14)
  - Hypoaesthesia [Unknown]
  - Dyspnoea [Unknown]
  - Pain [Unknown]
  - Paraesthesia [Unknown]
  - Feeling abnormal [Unknown]
  - Abdominal pain [Unknown]
  - Asthenia [Unknown]
  - Neuropathy peripheral [Unknown]
  - Insomnia [Not Recovered/Not Resolved]
  - Anxiety disorder [Unknown]
  - Syncope [Unknown]
  - Dizziness [Unknown]
  - Diarrhoea [Unknown]
  - Raynaud^s phenomenon [Unknown]

NARRATIVE: CASE EVENT DATE: 2010
